FAERS Safety Report 4641669-6 (Version None)
Quarter: 2005Q2

REPORT INFORMATION
  Report Type: 
  Country: None (occurrence: None)
  Receive Date: 20050420
  Receipt Date: 20050408
  Transmission Date: 20051028
  Serious: Yes (Hospitalization)
  Sender: FDA-Public Use
  Company Number: 05P-087-0297182-00

PATIENT
  Age: 26 Year
  Sex: Male

DRUGS (3)
  1. KALETRA [Suspect]
     Indication: HIV INFECTION
     Dosage: PER ORAL
     Route: 048
     Dates: start: 20020501, end: 20040301
  2. TENOFOVIR [Suspect]
     Indication: HIV INFECTION
     Dosage: PER ORAL
     Route: 048
     Dates: start: 20020501, end: 20040301
  3. DIDANOSINE [Suspect]
     Indication: HIV INFECTION
     Dosage: PER ORAL
     Route: 048
     Dates: start: 20020501, end: 20040301

REACTIONS (6)
  - ANOREXIA [None]
  - HYPONATRAEMIA [None]
  - MALAISE [None]
  - PYREXIA [None]
  - RENAL IMPAIRMENT [None]
  - RENAL TUBULAR DISORDER [None]
